FAERS Safety Report 16045031 (Version 1)
Quarter: 2019Q1

REPORT INFORMATION
  Report Type: Spontaneous
  Country: FR (occurrence: FR)
  Receive Date: 20190307
  Receipt Date: 20190307
  Transmission Date: 20190418
  Serious: Yes (Hospitalization)
  Sender: FDA-Public Use
  Company Number: FR-ACCORD-110888

PATIENT
  Age: 84 Year
  Sex: Male
  Weight: 92 kg

DRUGS (9)
  1. BRILIC [TICAGRELOR] [Suspect]
     Active Substance: TICAGRELOR
     Indication: PRODUCT USED FOR UNKNOWN INDICATION
     Dosage: STRENGTH 90 MG
     Route: 048
     Dates: start: 20160524
  2. RAMIPRIL. [Suspect]
     Active Substance: RAMIPRIL
     Indication: HYPERTENSION
     Route: 048
     Dates: end: 20160527
  3. ATORVASTATIN [Concomitant]
     Active Substance: ATORVASTATIN
  4. ATROVENT [Concomitant]
     Active Substance: IPRATROPIUM BROMIDE
  5. CIFLOX [Concomitant]
     Active Substance: CIPROFLOXACIN
  6. TAZOCILLINE [Concomitant]
     Active Substance: PIPERACILLIN SODIUM\TAZOBACTAM SODIUM
  7. BRICANYL [Concomitant]
     Active Substance: TERBUTALINE SULFATE
  8. KARDEGIC [Suspect]
     Active Substance: ASPIRIN DL-LYSINE
     Indication: HEART VALVE INCOMPETENCE
     Dosage: STRENGTH 75 MG IN SACHET-DOSE
     Route: 048
  9. BISOPROLOL [Concomitant]
     Active Substance: BISOPROLOL

REACTIONS (2)
  - Acute kidney injury [Recovered/Resolved with Sequelae]
  - Haematuria [Recovered/Resolved]

NARRATIVE: CASE EVENT DATE: 20160527
